FAERS Safety Report 7789618-6 (Version None)
Quarter: 2011Q3

REPORT INFORMATION
  Report Type: 
  Country: None (occurrence: None)
  Receive Date: 20110930
  Receipt Date: 20110922
  Transmission Date: 20111222
  Serious: Yes (Disabling, Other)
  Sender: FDA-Public Use
  Company Number: US-NAPPMUNDI-USA-2011-0074924

PATIENT
  Age: 37 Year
  Sex: Male

DRUGS (1)
  1. OXYCODONE HCL [Suspect]
     Indication: ACCIDENT AT WORK

REACTIONS (2)
  - ROAD TRAFFIC ACCIDENT [None]
  - OPIATES POSITIVE [None]
